FAERS Safety Report 5145544-2 (Version None)
Quarter: 2006Q4

REPORT INFORMATION
  Report Type: 
  Country: None (occurrence: None)
  Receive Date: 20061101
  Receipt Date: 20061024
  Transmission Date: 20070319
  Serious: Yes (Death)
  Sender: FDA-Public Use
  Company Number: 163-21880-06101112

PATIENT
  Age: 25 Year
  Sex: Male

DRUGS (1)
  1. REVLIMID [Suspect]
     Indication: NEOPLASM MALIGNANT
     Dosage: 10 MG, 1 IN 1 D, ORAL
     Route: 048
     Dates: start: 20061013, end: 20061019

REACTIONS (2)
  - MALIGNANT NEOPLASM PROGRESSION [None]
  - MALIGNANT SPLENIC NEOPLASM [None]
